FAERS Safety Report 16440494 (Version 3)
Quarter: 2019Q3

REPORT INFORMATION
  Report Type: Report from Study
  Country: AE (occurrence: AE)
  Receive Date: 20190617
  Receipt Date: 20190716
  Transmission Date: 20191004
  Serious: Yes (Life-Threatening, Hospitalization, Other)
  Sender: FDA-Public Use
  Company Number: PHHY2019AE031886

PATIENT
  Age: 51 Year
  Sex: Female

DRUGS (2)
  1. XGEVA [Concomitant]
     Active Substance: DENOSUMAB
     Indication: OSTEOPOROSIS
     Route: 065
  2. KISQALI [Suspect]
     Active Substance: RIBOCICLIB
     Indication: BREAST CANCER METASTATIC
     Dosage: 600 MG, QD
     Route: 048
     Dates: start: 20190124, end: 20190604

REACTIONS (5)
  - Malignant neoplasm progression [Unknown]
  - Musculoskeletal chest pain [Recovered/Resolved]
  - Dizziness [Not Recovered/Not Resolved]
  - Rib fracture [Recovered/Resolved]
  - Metastases to spine [Unknown]

NARRATIVE: CASE EVENT DATE: 20190124
